FAERS Safety Report 7120534-9 (Version None)
Quarter: 2010Q4

REPORT INFORMATION
  Report Type: 
  Country: None (occurrence: None)
  Receive Date: 20101124
  Receipt Date: 20101118
  Transmission Date: 20110411
  Serious: No
  Sender: FDA-Public Use
  Company Number: DE-PFIZER INC-2010144812

PATIENT
  Age: 48 Year
  Sex: Female

DRUGS (1)
  1. CHAMPIX [Suspect]
     Indication: SMOKING CESSATION THERAPY
     Dosage: 0.5 MG, UNK
     Route: 048
     Dates: start: 20101024, end: 20100101

REACTIONS (3)
  - BODY TEMPERATURE DECREASED [None]
  - EYE PAIN [None]
  - HEMICEPHALALGIA [None]
